FAERS Safety Report 21326754 (Version 1)
Quarter: 2022Q3

REPORT INFORMATION
  Report Type: Spontaneous
  Country: US (occurrence: US)
  Receive Date: 20220913
  Receipt Date: 20220913
  Transmission Date: 20221026
  Serious: Yes (Other)
  Sender: FDA-Public Use
  Company Number: US-SUN PHARMACEUTICAL INDUSTRIES LTD-2020R1-240238

PATIENT
  Age: 13 Year
  Sex: Female

DRUGS (1)
  1. METHOTREXATE [Suspect]
     Active Substance: METHOTREXATE
     Indication: Osteosarcoma
     Dosage: 12 G/M2 OVER 4 HOURS
     Route: 065

REACTIONS (4)
  - Toxicity to various agents [Unknown]
  - Encephalopathy [Recovered/Resolved]
  - Hepatic failure [Unknown]
  - Renal failure [Recovered/Resolved]
